FAERS Safety Report 9909710 (Version 1)
Quarter: 2014Q1

REPORT INFORMATION
  Report Type: Spontaneous
  Country: US (occurrence: US)
  Receive Date: 20140219
  Receipt Date: 20140219
  Transmission Date: 20141002
  Serious: No
  Sender: FDA-Public Use
  Company Number: US-PFIZER INC-2014043239

PATIENT
  Sex: Female

DRUGS (1)
  1. ADVIL [Suspect]
     Indication: PAIN
     Dosage: FOUR TO SIX TABLETS, AS NEEDED
     Route: 048
     Dates: start: 201402

REACTIONS (2)
  - Drug interaction [Unknown]
  - Malaise [Unknown]
